FAERS Safety Report 23965671 (Version 1)
Quarter: 2024Q2

REPORT INFORMATION
  Report Type: Spontaneous
  Country: US (occurrence: US)
  Receive Date: 20240612
  Receipt Date: 20240612
  Transmission Date: 20240715
  Serious: Yes (Other)
  Sender: FDA-Public Use
  Company Number: US-IMMUNOGEN, INC.-US-IMGN-24-00292

PATIENT
  Age: 55 Year
  Sex: Female

DRUGS (1)
  1. ELAHERE [Suspect]
     Active Substance: MIRVETUXIMAB SORAVTANSINE-GYNX
     Indication: Ovarian cancer
     Dosage: UNK, UNK, 4 DOSES
     Route: 065
     Dates: start: 20231208

REACTIONS (2)
  - Pneumonitis [Recovering/Resolving]
  - Ocular toxicity [Unknown]

NARRATIVE: CASE EVENT DATE: 20240301
